FAERS Safety Report 19889941 (Version 2)
Quarter: 2021Q4

REPORT INFORMATION
  Report Type: Report from Study
  Country: DE (occurrence: DE)
  Receive Date: 20210928
  Receipt Date: 20211101
  Transmission Date: 20220303
  Serious: Yes (Other)
  Sender: FDA-Public Use
  Company Number: DE-002147023-NVSC2020DE286835

PATIENT
  Sex: Female
  Weight: 88 kg

DRUGS (4)
  1. LETROZOLE [Suspect]
     Active Substance: LETROZOLE
     Indication: Breast cancer
     Dosage: 2.5 MILLIGRAM, QD
     Route: 048
     Dates: start: 20200120
  2. KISQALI [Suspect]
     Active Substance: RIBOCICLIB
     Indication: Breast cancer
     Dosage: 600 MILLIGRAM, QD (600 MG, QD)
     Route: 048
     Dates: start: 20200120, end: 20200920
  3. KISQALI [Suspect]
     Active Substance: RIBOCICLIB
     Dosage: 1800 MILLIGRAM, QD
     Route: 048
     Dates: start: 20200120
  4. KISQALI [Suspect]
     Active Substance: RIBOCICLIB
     Dosage: 400 MILLIGRAM, QD/ START DATE:21-SEP-2020
     Route: 048
     Dates: end: 20210201

REACTIONS (3)
  - Neutropenia [Recovered/Resolved]
  - Overdose [Unknown]
  - Skin reaction [Unknown]

NARRATIVE: CASE EVENT DATE: 20200810
